FAERS Safety Report 24290467 (Version 1)
Quarter: 2024Q3

REPORT INFORMATION
  Report Type: Spontaneous
  Country: US (occurrence: None)
  Receive Date: 20240905
  Receipt Date: 20240905
  Transmission Date: 20241017
  Serious: Yes (Hospitalization)
  Sender: Public
  Company Number: None

PATIENT
  Sex: Female

DRUGS (3)
  1. ENBREL [Suspect]
     Active Substance: ETANERCEPT
     Indication: Rheumatoid arthritis
     Dosage: FREQUENCY : WEEKLY;?
     Route: 058
     Dates: start: 202408
  2. ENBREL [Suspect]
     Active Substance: ETANERCEPT
     Indication: Rheumatoid factor negative
  3. ENBREL [Suspect]
     Active Substance: ETANERCEPT
     Indication: Polyarthritis

REACTIONS (2)
  - Rheumatoid arthritis [None]
  - Pain [None]
